FAERS Safety Report 4439761-4 (Version None)
Quarter: 2004Q3

REPORT INFORMATION
  Report Type: 
  Country: None (occurrence: None)
  Receive Date: 20040831
  Receipt Date: 20040817
  Transmission Date: 20050211
  Serious: Yes (Death)
  Sender: FDA-Public Use
  Company Number: 2004-0006898

PATIENT
  Age: 57 Year
  Sex: Male

DRUGS (4)
  1. ADEFOVIR DIPIVOXIL [Suspect]
     Indication: CONDITION AGGRAVATED
     Dosage: 10 MG, 1 IN 1 D, ORAL
     Route: 048
     Dates: start: 20040206, end: 20040215
  2. ADEFOVIR DIPIVOXIL [Suspect]
     Indication: HEPATITIS B
     Dosage: 10 MG, 1 IN 1 D, ORAL
     Route: 048
     Dates: start: 20040206, end: 20040215
  3. LAMIVUDINE  (LAMIVUDINE) [Concomitant]
  4. PRAVASTATIN [Concomitant]

REACTIONS (2)
  - HEPATIC FAILURE [None]
  - HEPATITIS B [None]
